FAERS Safety Report 9472449 (Version 1)
Quarter: 2013Q3

REPORT INFORMATION
  Report Type: Report from Study
  Country: US (occurrence: US)
  Receive Date: 20130823
  Receipt Date: 20130823
  Transmission Date: 20140515
  Serious: Yes (Hospitalization)
  Sender: FDA-Public Use
  Company Number: US-SANOFI-AVENTIS-2013SA083996

PATIENT
  Age: 55 Year
  Sex: Male
  Weight: 107 kg

DRUGS (22)
  1. CABAZITAXEL [Suspect]
     Indication: PROSTATE CANCER
     Route: 042
     Dates: start: 20130507, end: 20130710
  2. ANTINEOPLASTIC AGENTS [Suspect]
     Route: 065
  3. ZOFRAN [Concomitant]
     Indication: NAUSEA
     Route: 048
     Dates: start: 20130606
  4. DILAUDID [Concomitant]
     Indication: PAIN
     Route: 048
     Dates: start: 20130419
  5. PREDNISONE [Concomitant]
     Route: 048
     Dates: start: 20130507
  6. NEULASTA [Concomitant]
     Indication: PROPHYLAXIS
     Route: 058
     Dates: start: 20130508
  7. DECADRON [Concomitant]
     Indication: PREMEDICATION
     Route: 042
     Dates: start: 20130507
  8. DIPHENHYDRAMINE HYDROCHLORIDE [Concomitant]
     Indication: PREMEDICATION
     Route: 042
     Dates: start: 20130507
  9. PEPCID [Concomitant]
     Route: 042
     Dates: start: 20130507
  10. LANTUS [Concomitant]
     Indication: DIABETES MELLITUS
     Dosage: DOSE:14 UNIT(S)
     Route: 058
     Dates: start: 200507
  11. FENTANYL [Concomitant]
     Indication: PAIN
     Dosage: 1 IN 72 HOURS
     Route: 062
     Dates: start: 20110419
  12. LASIX [Concomitant]
     Indication: OEDEMA
     Route: 048
     Dates: start: 20121122
  13. KLOR-CON [Concomitant]
     Indication: MINERAL SUPPLEMENTATION
     Route: 048
     Dates: start: 20120902
  14. LEVSIN [Concomitant]
     Indication: ABDOMINAL PAIN
     Route: 048
     Dates: start: 20100902
  15. CYMBALTA [Concomitant]
     Indication: DEPRESSION
  16. PROMETHAZINE [Concomitant]
     Indication: NAUSEA
     Route: 048
     Dates: start: 20120720
  17. NEURONTIN [Concomitant]
     Indication: PERIPHERAL SENSORY NEUROPATHY
     Route: 048
     Dates: start: 20120521
  18. MICRONASE [Concomitant]
     Indication: DIABETES MELLITUS
     Route: 048
  19. INDERAL [Concomitant]
     Indication: HYPERTENSION
     Route: 048
     Dates: start: 20121025
  20. CRESTOR [Concomitant]
     Indication: HYPERLIPIDAEMIA
     Route: 048
  21. LUPRON [Concomitant]
     Indication: PROSTATE CANCER
     Dosage: 22.5 MH, 1 IN 3 MONTH
     Route: 030
     Dates: start: 20100720
  22. RED BLOOD CELLS [Concomitant]
     Indication: HAEMOGLOBIN DECREASED
     Dosage: 1 IN 1 DAY DOSE:2 UNIT(S)
     Route: 042
     Dates: start: 20120726

REACTIONS (2)
  - Pleural effusion [Unknown]
  - Ascites [Not Recovered/Not Resolved]
